FAERS Safety Report 23481774 (Version 1)
Quarter: 2024Q1

REPORT INFORMATION
  Report Type: Spontaneous
  Country: US (occurrence: None)
  Receive Date: 20240205
  Receipt Date: 20240205
  Transmission Date: 20240410
  Serious: Yes (Other)
  Sender: FDA-Public Use
  Company Number: None

PATIENT
  Age: 73 Year
  Sex: Female

DRUGS (16)
  1. COPAXONE [Suspect]
     Active Substance: GLATIRAMER ACETATE
     Route: 058
     Dates: start: 20150910
  2. AMPYRA TAB [Concomitant]
  3. BACLOFEN [Concomitant]
     Active Substance: BACLOFEN
  4. ELIQUIS TAB [Concomitant]
  5. FISH OIL [Concomitant]
  6. GABAPENTIN CAP [Concomitant]
  7. GLUCOSAMINE CAP [Concomitant]
  8. HYDROCO/APAP TAB [Concomitant]
  9. LISINOPIRL TAB [Concomitant]
  10. MAGNESIUM CAP [Concomitant]
  11. MELATONIN TAB [Concomitant]
  12. MYRBETRIQ TAB [Concomitant]
  13. VITAMIN B-12 250MCG [Concomitant]
  14. VITAMIN B-6 TAB [Concomitant]
  15. VITAMIN D CAP 5000UNT [Concomitant]
  16. ZINC TAB 50MG [Concomitant]

REACTIONS (1)
  - Knee operation [None]

NARRATIVE: CASE EVENT DATE: 20240101
